FAERS Safety Report 9706095 (Version 1)
Quarter: 2013Q4

REPORT INFORMATION
  Report Type: Spontaneous
  Country: US (occurrence: US)
  Receive Date: 20131124
  Receipt Date: 20131124
  Transmission Date: 20140711
  Serious: Yes (Death)
  Sender: FDA-Public Use
  Company Number: US-SANOFI-AVENTIS-2012SA085701

PATIENT
  Sex: Female

DRUGS (2)
  1. PLAVIX [Suspect]
     Indication: PRODUCT USED FOR UNKNOWN INDICATION
     Route: 065
     Dates: start: 201010
  2. ASPIRIN [Suspect]
     Route: 065
     Dates: start: 201010

REACTIONS (4)
  - Thrombotic thrombocytopenic purpura [Fatal]
  - Gastrointestinal haemorrhage [Fatal]
  - Myocardial infarction [Fatal]
  - Cerebrovascular accident [Fatal]
